FAERS Safety Report 17559647 (Version 1)
Quarter: 2020Q1

REPORT INFORMATION
  Report Type: Spontaneous
  Country: US (occurrence: US)
  Receive Date: 20200319
  Receipt Date: 20200319
  Transmission Date: 20200409
  Serious: No
  Sender: FDA-Public Use
  Company Number: US-SA-2020SA063904

PATIENT
  Age: 24 Year
  Sex: Male

DRUGS (2)
  1. DUPIXENT [Suspect]
     Active Substance: DUPILUMAB
     Indication: PSORIASIS
     Dosage: 600 MG, 1X
     Route: 058
     Dates: start: 20200305, end: 20200305
  2. BETAMETHASONE. [Concomitant]
     Active Substance: BETAMETHASONE
     Route: 061

REACTIONS (2)
  - Dizziness [Recovered/Resolved]
  - Product use in unapproved indication [Unknown]

NARRATIVE: CASE EVENT DATE: 20200305
